FAERS Safety Report 9885450 (Version 1)
Quarter: 2014Q1

REPORT INFORMATION
  Report Type: Spontaneous
  Country: US (occurrence: US)
  Receive Date: 20140210
  Receipt Date: 20140210
  Transmission Date: 20141002
  Serious: No
  Sender: FDA-Public Use
  Company Number: US-BAYER-2014-014042

PATIENT
  Sex: Male
  Weight: 84 kg

DRUGS (9)
  1. BETASERON [Suspect]
     Indication: MULTIPLE SCLEROSIS
     Dosage: 0.25 MG, QOD
     Route: 058
  2. BETHANECHOL [Concomitant]
     Dosage: 25 MG, UNK
  3. CITALOPRAM [Concomitant]
     Dosage: 10 MG, UNK
  4. DIAZEPAM [Concomitant]
     Dosage: 2 MG, UNK
  5. BACLOFEN [Concomitant]
     Dosage: 20 MG, UNK
  6. TAMSULOSIN [Concomitant]
     Dosage: 0.4 MG, UNK
  7. LISINOPRIL [Concomitant]
     Dosage: 5 MG, UNK
  8. PROVIGIL [Concomitant]
     Dosage: 200 MG, UNK
  9. VITAMIN D3 [Concomitant]
     Dosage: 10000 U, UNK

REACTIONS (4)
  - White blood cell count decreased [Unknown]
  - Drug ineffective [Unknown]
  - Injection site erosion [Unknown]
  - Injection site induration [Unknown]
